FAERS Safety Report 21047690 (Version 1)
Quarter: 2022Q3

REPORT INFORMATION
  Report Type: Spontaneous
  Country: JP (occurrence: JP)
  Receive Date: 20220706
  Receipt Date: 20220706
  Transmission Date: 20221027
  Serious: Yes (Hospitalization, Other)
  Sender: FDA-Public Use
  Company Number: JP-MYLANLABS-2022M1050398

PATIENT
  Age: 9 Year
  Sex: Male

DRUGS (9)
  1. MYCOPHENOLATE MOFETIL [Suspect]
     Active Substance: MYCOPHENOLATE MOFETIL
     Indication: Henoch-Schonlein purpura
     Route: 048
  2. PREDNISOLONE [Suspect]
     Active Substance: PREDNISOLONE
     Indication: Henoch-Schonlein purpura
     Dosage: 5 MILLIGRAM, QD
     Route: 065
  3. PREDNISOLONE [Suspect]
     Active Substance: PREDNISOLONE
     Dosage: 4 MILLIGRAM, QD
     Route: 065
  4. FACTOR XIII CONCENTRATE (HUMAN) [Suspect]
     Active Substance: FACTOR XIII CONCENTRATE (HUMAN)
     Indication: Henoch-Schonlein purpura
     Route: 065
  5. IMMUNE GLOBULIN NOS [Suspect]
     Active Substance: IMMUNE GLOBULIN NOS
     Indication: Henoch-Schonlein purpura
     Dosage: 1 G/KG
     Route: 042
  6. DAPSONE [Suspect]
     Active Substance: DAPSONE
     Indication: Henoch-Schonlein purpura
     Dosage: 50 MILLIGRAM, QD, 1.7 MG/KG/DAY
     Route: 065
  7. DAPSONE [Suspect]
     Active Substance: DAPSONE
     Dosage: 25 MILLIGRAM, QD
     Route: 065
  8. DAPSONE [Suspect]
     Active Substance: DAPSONE
     Dosage: 12.5 MILLIGRAM, QD
     Route: 065
  9. METHYLPREDNISOLONE [Concomitant]
     Active Substance: METHYLPREDNISOLONE
     Indication: Henoch-Schonlein purpura
     Route: 042

REACTIONS (3)
  - Drug ineffective [Unknown]
  - Henoch-Schonlein purpura [Recovering/Resolving]
  - Rebound effect [Recovering/Resolving]
